FAERS Safety Report 10489185 (Version 1)
Quarter: 2014Q4

REPORT INFORMATION
  Report Type: Spontaneous
  Country: US (occurrence: US)
  Receive Date: 20141002
  Receipt Date: 20141002
  Transmission Date: 20150528
  Serious: No
  Sender: FDA-Public Use
  Company Number: US-PFIZER INC-2014267967

PATIENT
  Age: 77 Year
  Sex: Male
  Weight: 147.4 kg

DRUGS (1)
  1. TRIAZOLAM. [Suspect]
     Active Substance: TRIAZOLAM
     Indication: SLEEP DISORDER
     Dosage: 0.125 MG, DAILY
     Dates: start: 20140918

REACTIONS (6)
  - Drug ineffective [Unknown]
  - Feeling abnormal [Unknown]
  - Abnormal dreams [Unknown]
  - Hallucination [Unknown]
  - Restlessness [Unknown]
  - Impaired work ability [Unknown]
